FAERS Safety Report 13960267 (Version 5)
Quarter: 2021Q4

REPORT INFORMATION
  Report Type: Spontaneous
  Country: US (occurrence: US)
  Receive Date: 20170912
  Receipt Date: 20211019
  Transmission Date: 20220303
  Serious: Yes (Death)
  Sender: FDA-Public Use
  Company Number: US-PFIZER INC-2017391119

PATIENT
  Age: 75 Year
  Sex: Female
  Weight: 72.57 kg

DRUGS (4)
  1. XELJANZ [Suspect]
     Active Substance: TOFACITINIB CITRATE
     Indication: Arthritis
     Dosage: 5 MG, 2X/DAY
     Route: 048
  2. XELJANZ [Suspect]
     Active Substance: TOFACITINIB CITRATE
     Dosage: 5 MG, 2X/DAY
     Route: 048
     Dates: start: 2016
  3. XELJANZ [Suspect]
     Active Substance: TOFACITINIB CITRATE
     Dosage: 5 MG, 1X/DAY
     Route: 048
  4. METHOTREXATE [Concomitant]
     Active Substance: METHOTREXATE
     Dosage: 10 MG, WEEKLY [4 PILLS, ONCE A WEEK AT 2.5MG]

REACTIONS (4)
  - Death [Fatal]
  - Herpes zoster [Recovered/Resolved]
  - Blister infected [Recovered/Resolved]
  - Neuralgia [Not Recovered/Not Resolved]

NARRATIVE: CASE EVENT DATE: 20170722
